FAERS Safety Report 7713342-9 (Version None)
Quarter: 2011Q3

REPORT INFORMATION
  Report Type: 
  Country: None (occurrence: None)
  Receive Date: 20110826
  Receipt Date: 20110823
  Transmission Date: 20111222
  Serious: Yes (Hospitalization)
  Sender: FDA-Public Use
  Company Number: CHPA2011NO08629

PATIENT
  Weight: 2.2 kg

DRUGS (3)
  1. OTRIVIN [Suspect]
     Dosage: MATERNAL DOSE: 1-3 TIMES PER DAY
     Route: 064
  2. OTRIVIN [Suspect]
     Indication: NASAL CONGESTION
     Dosage: MATERNAL DOSE: APPROXIMATELY 2 TIMES DAILY
     Route: 064
     Dates: start: 20110227, end: 20110301
  3. SODIUM CHLORIDE [Suspect]
     Dosage: UNK, UNK
     Route: 065

REACTIONS (5)
  - JAUNDICE [None]
  - SMALL FOR DATES BABY [None]
  - PREMATURE BABY [None]
  - MATERNAL EXPOSURE DURING PREGNANCY [None]
  - DRUG ADMINISTRATION ERROR [None]
